FAERS Safety Report 19853926 (Version 1)
Quarter: 2021Q3

REPORT INFORMATION
  Report Type: Spontaneous
  Country: SV (occurrence: SV)
  Receive Date: 20210920
  Receipt Date: 20210920
  Transmission Date: 20211014
  Serious: Yes (Other)
  Sender: FDA-Public Use
  Company Number: NVSC2020SV009380

PATIENT
  Sex: Male

DRUGS (1)
  1. GLIVEC [Suspect]
     Active Substance: IMATINIB MESYLATE
     Indication: CHRONIC MYELOID LEUKAEMIA
     Dosage: 400 MG (4 X 100MG)
     Route: 065

REACTIONS (7)
  - Asthenia [Unknown]
  - Diarrhoea [Recovered/Resolved]
  - Prostatitis [Unknown]
  - Eructation [Unknown]
  - Flatulence [Unknown]
  - Malaise [Unknown]
  - Nausea [Unknown]
